FAERS Safety Report 7014126-X (Version None)
Quarter: 2010Q3

REPORT INFORMATION
  Report Type: 
  Country: None (occurrence: None)
  Receive Date: 20100927
  Receipt Date: 20100826
  Transmission Date: 20110219
  Serious: No
  Sender: FDA-Public Use
  Company Number: US-MYLANLABS-2010S1015968

PATIENT
  Sex: Female

DRUGS (1)
  1. RISPERIDONE [Suspect]

REACTIONS (5)
  - ABDOMINAL PAIN UPPER [None]
  - HEADACHE [None]
  - INSOMNIA [None]
  - PAIN [None]
  - PSYCHOMOTOR HYPERACTIVITY [None]
